FAERS Safety Report 4393860-4 (Version None)
Quarter: 2004Q3

REPORT INFORMATION
  Report Type: 
  Country: None (occurrence: None)
  Receive Date: 20040701
  Receipt Date: 20040623
  Transmission Date: 20050211
  Serious: Yes (Death)
  Sender: FDA-Public Use
  Company Number: 207178

PATIENT
  Age: 68 Year
  Sex: Female
  Weight: 85.7 kg

DRUGS (6)
  1. HERCEPTIN [Suspect]
     Indication: BREAST CANCER
     Dosage: 680 MG, INTRAVENOUS
     Route: 042
     Dates: start: 20040607
  2. TAXOL [Suspect]
     Indication: BREAST CANCER METASTATIC
     Dosage: 300 MG, INTRAVENOUS
     Route: 042
     Dates: start: 20040607
  3. SOLU-CORTEF [Concomitant]
  4. BENADRYL [Concomitant]
  5. TAGAMET [Concomitant]
  6. KYTRIL [Concomitant]

REACTIONS (1)
  - METASTASES TO LIVER [None]
